FAERS Safety Report 7803117-4 (Version None)
Quarter: 2011Q4

REPORT INFORMATION
  Report Type: 
  Country: None (occurrence: None)
  Receive Date: 20111007
  Receipt Date: 20110930
  Transmission Date: 20120403
  Serious: Yes (Hospitalization)
  Sender: FDA-Public Use
  Company Number: JP-JNJFOC-20111001379

PATIENT
  Sex: Female
  Weight: 58 kg

DRUGS (29)
  1. FAMOTIDINE [Concomitant]
     Indication: PROPHYLAXIS
     Route: 048
     Dates: start: 20090716
  2. DOXORUBICIN HCL [Suspect]
     Indication: OVARIAN CANCER RECURRENT
     Dosage: CYCLE 2
     Route: 042
     Dates: start: 20090625, end: 20090625
  3. JUVELA [Concomitant]
     Indication: PRODUCT USED FOR UNKNOWN INDICATION
     Route: 048
     Dates: start: 20090528
  4. LIPIDIL [Concomitant]
     Indication: HYPERLIPIDAEMIA
     Route: 048
  5. METOPROLOL TARTRATE [Concomitant]
     Indication: PRODUCT USED FOR UNKNOWN INDICATION
     Route: 048
     Dates: start: 20090530
  6. ASTOMIN [Concomitant]
     Indication: NASOPHARYNGITIS
     Route: 048
     Dates: start: 20090716
  7. SELBEX [Concomitant]
     Indication: PROPHYLAXIS
     Route: 048
     Dates: start: 20090530, end: 20090629
  8. MOTILIUM [Concomitant]
     Indication: PRODUCT USED FOR UNKNOWN INDICATION
     Route: 048
     Dates: start: 20090716
  9. ALLOPURINOL [Concomitant]
     Indication: PRODUCT USED FOR UNKNOWN INDICATION
     Route: 048
     Dates: start: 20090530
  10. FLURBIPROFEN [Concomitant]
     Route: 042
     Dates: start: 20090817, end: 20090817
  11. DOXORUBICIN HCL [Suspect]
     Dosage: CYCLE 3
     Route: 042
     Dates: start: 20090730, end: 20090730
  12. URSO 250 [Concomitant]
     Indication: HEPATIC STEATOSIS
     Route: 048
  13. VITAMEDIN [Concomitant]
     Indication: STOMATITIS
     Route: 042
     Dates: start: 20090817, end: 20090823
  14. XYLOCAINE [Concomitant]
     Indication: STOMATITIS
     Route: 049
  15. RAMELTEON [Concomitant]
     Indication: PROPHYLAXIS
     Route: 042
     Dates: start: 20090528, end: 20090528
  16. RAMELTEON [Concomitant]
     Route: 042
     Dates: start: 20090625, end: 20090625
  17. FLAVITAN [Concomitant]
     Indication: STOMATITIS
     Route: 042
     Dates: start: 20090817, end: 20090823
  18. AZUNOL [Concomitant]
     Indication: STOMATITIS
     Route: 049
  19. ROCEPHIN [Concomitant]
     Indication: PYREXIA
     Route: 042
     Dates: start: 20090820, end: 20090822
  20. DOXORUBICIN HCL [Suspect]
     Dosage: CYCLE 1
     Route: 042
     Dates: start: 20090528, end: 20090528
  21. FURSULTIAMINE [Concomitant]
     Indication: PROPHYLAXIS
     Route: 048
  22. ALL OTHER THERAPEUTIC PRODUCTS [Concomitant]
     Indication: PROPHYLAXIS
     Route: 048
  23. ALL OTHER THERAPEUTIC PRODUCTS [Concomitant]
     Route: 048
  24. METHYCOBAL [Concomitant]
     Indication: PRODUCT USED FOR UNKNOWN INDICATION
     Route: 048
     Dates: start: 20090528
  25. COSPANON [Concomitant]
     Indication: PRODUCT USED FOR UNKNOWN INDICATION
     Route: 048
     Dates: start: 20090530
  26. DEXALTIN [Concomitant]
     Indication: STOMATITIS
     Dosage: Q.S
     Route: 049
     Dates: start: 20090611
  27. LOXONIN [Concomitant]
     Indication: PROPHYLAXIS
     Route: 048
  28. MUCOSOLVAN [Concomitant]
     Indication: PRODUCT USED FOR UNKNOWN INDICATION
     Route: 048
     Dates: start: 20090730, end: 20090813
  29. TPN ELECTROLYTES IN PLASTIC CONTAINER [Concomitant]
     Indication: EATING DISORDER
     Route: 042
     Dates: start: 20090818, end: 20090824

REACTIONS (2)
  - STOMATITIS [None]
  - EATING DISORDER [None]
